FAERS Safety Report 6224927-3 (Version None)
Quarter: 2009Q2

REPORT INFORMATION
  Report Type: 
  Country: None (occurrence: None)
  Receive Date: 20090612
  Receipt Date: 20090402
  Transmission Date: 20091009
  Serious: Yes (Hospitalization, Other)
  Sender: FDA-Public Use
  Company Number: US-ABBOTT-09P-163-0566038-00

PATIENT
  Sex: Female

DRUGS (2)
  1. HUMIRA [Suspect]
     Indication: PSORIASIS
     Route: 058
     Dates: start: 20080101, end: 20080101
  2. HUMIRA [Suspect]
     Route: 058
     Dates: start: 20080101, end: 20090301

REACTIONS (5)
  - ABDOMINAL PAIN [None]
  - FUNGAL INFECTION [None]
  - HELICOBACTER INFECTION [None]
  - LOCALISED INFECTION [None]
  - PAIN [None]
